FAERS Safety Report 5037716-2 (Version None)
Quarter: 2006Q2

REPORT INFORMATION
  Report Type: 
  Country: None (occurrence: None)
  Receive Date: 20060601
  Receipt Date: 20060210
  Transmission Date: 20061013
  Serious: No
  Sender: FDA-Public Use
  Company Number: 2006PV008494

PATIENT
  Age: 50 Year
  Sex: Female
  Weight: 99.5645 kg

DRUGS (2)
  1. BYETTA [Suspect]
     Indication: DIABETES MELLITUS NON-INSULIN-DEPENDENT
     Dosage: SEE IMAGE
     Route: 058
     Dates: start: 20060110, end: 20060207
  2. BYETTA [Suspect]
     Indication: DIABETES MELLITUS NON-INSULIN-DEPENDENT
     Dosage: SEE IMAGE
     Route: 058
     Dates: start: 20060208

REACTIONS (14)
  - ABDOMINAL DISTENSION [None]
  - ANOREXIA [None]
  - CONSTIPATION [None]
  - DEHYDRATION [None]
  - ERUCTATION [None]
  - FEELING COLD [None]
  - GASTROOESOPHAGEAL REFLUX DISEASE [None]
  - HEADACHE [None]
  - NAUSEA [None]
  - PERIPHERAL COLDNESS [None]
  - PHOTOPHOBIA [None]
  - RETCHING [None]
  - THIRST DECREASED [None]
  - VOMITING [None]
